FAERS Safety Report 5212713-2 (Version None)
Quarter: 2006Q4

REPORT INFORMATION
  Report Type: 
  Country: None (occurrence: None)
  Receive Date: 20061115
  Receipt Date: 20060907
  Transmission Date: 20070319
  Serious: Yes (Other)
  Sender: FDA-Public Use
  Company Number: 200615404BWH

PATIENT

DRUGS (1)
  1. NEXAVAR [Suspect]
     Indication: PAPILLARY THYROID CANCER
     Dates: start: 20060101

REACTIONS (2)
  - HAEMOPTYSIS [None]
  - PANCREATITIS [None]
